FAERS Safety Report 6436115-6 (Version None)
Quarter: 2009Q4

REPORT INFORMATION
  Report Type: 
  Country: None (occurrence: None)
  Receive Date: 20091111
  Receipt Date: 20091027
  Transmission Date: 20100525
  Serious: Yes (Hospitalization)
  Sender: FDA-Public Use
  Company Number: PL-GENENTECH-292256

PATIENT
  Sex: Male

DRUGS (11)
  1. BEVACIZUMAB [Suspect]
     Indication: RENAL CELL CARCINOMA
     Dosage: UNK
     Route: 042
     Dates: start: 20090727, end: 20091005
  2. TEMSIROLIMUS [Suspect]
     Indication: RENAL CELL CARCINOMA
     Dosage: UNK
     Route: 042
     Dates: start: 20090727, end: 20091005
  3. TEMSIROLIMUS [Suspect]
     Dosage: 20 MG, UNK
     Route: 042
  4. SALINE [Concomitant]
     Indication: DRUG USE FOR UNKNOWN INDICATION
     Dosage: UNK
     Dates: start: 20091005
  5. ELECTROLYTES [Concomitant]
     Indication: DRUG USE FOR UNKNOWN INDICATION
     Dosage: UNK
     Dates: start: 20091005
  6. ACETAMINOPHEN [Concomitant]
     Indication: DRUG USE FOR UNKNOWN INDICATION
     Dosage: UNK
     Dates: start: 20091005
  7. OMEPRAZOLE [Concomitant]
     Indication: DRUG USE FOR UNKNOWN INDICATION
     Dosage: UNK
     Dates: start: 20091005
  8. DEXAMETHASONE [Concomitant]
     Indication: DRUG USE FOR UNKNOWN INDICATION
     Dosage: UNK
     Dates: start: 20091006, end: 20091006
  9. CLEMASTINE FUMARATE [Concomitant]
     Indication: DRUG USE FOR UNKNOWN INDICATION
     Dosage: UNK
     Dates: start: 20091006, end: 20091006
  10. LOPERAMIDE [Concomitant]
     Indication: DRUG USE FOR UNKNOWN INDICATION
     Dosage: UNK
     Dates: start: 20091010, end: 20091011
  11. NIFUROXAZIDE [Concomitant]
     Indication: DRUG USE FOR UNKNOWN INDICATION
     Dosage: UNK
     Dates: start: 20091010, end: 20091012

REACTIONS (1)
  - ANAEMIA [None]
